FAERS Safety Report 10175403 (Version 1)
Quarter: 2014Q2

REPORT INFORMATION
  Report Type: Spontaneous
  Country: US (occurrence: US)
  Receive Date: 20140515
  Receipt Date: 20140515
  Transmission Date: 20141212
  Serious: Yes (Hospitalization)
  Sender: FDA-Public Use
  Company Number: US-BAXTER-2014BAX022900

PATIENT
  Sex: Female

DRUGS (4)
  1. DIANEAL LOW CALCIUM [Suspect]
     Indication: PERITONEAL DIALYSIS
     Route: 033
     Dates: end: 201404
  2. DIANEAL LOW CALCIUM [Suspect]
     Route: 033
     Dates: start: 201404
  3. DIANEAL LOW CALCIUM [Suspect]
     Indication: PERITONEAL DIALYSIS
     Route: 033
     Dates: end: 201404
  4. DIANEAL LOW CALCIUM [Suspect]
     Indication: FLUID OVERLOAD
     Route: 033
     Dates: start: 201404

REACTIONS (3)
  - Muscle rupture [Recovered/Resolved]
  - Abdominal injury [Unknown]
  - Fluid overload [Recovering/Resolving]
